FAERS Safety Report 7970028-3 (Version None)
Quarter: 2011Q4

REPORT INFORMATION
  Report Type: 
  Country: None (occurrence: None)
  Receive Date: 20111122
  Receipt Date: 20110820
  Transmission Date: 20120403
  Serious: No
  Sender: FDA-Public Use
  Company Number: PHEH2011US02293

PATIENT
  Age: 24 Year
  Sex: Female

DRUGS (3)
  1. GILENYA [Suspect]
     Indication: MULTIPLE SCLEROSIS
     Dosage: 0.5 MG, QD, ORAL
     Route: 048
     Dates: start: 20110119
  2. BACLOFEN [Concomitant]
  3. TOPAMAX [Concomitant]

REACTIONS (5)
  - PARAESTHESIA [None]
  - SOMNOLENCE [None]
  - HYPOAESTHESIA [None]
  - DEPRESSED MOOD [None]
  - DIZZINESS POSTURAL [None]
